FAERS Safety Report 7748965-4 (Version None)
Quarter: 2011Q3

REPORT INFORMATION
  Report Type: 
  Country: None (occurrence: None)
  Receive Date: 20110909
  Receipt Date: 20110826
  Transmission Date: 20111222
  Serious: Yes (Death, Other)
  Sender: FDA-Public Use
  Company Number: GER/UKI/11/0020834

PATIENT
  Age: 92 Year
  Sex: Female
  Weight: 64 kg

DRUGS (15)
  1. INADINE (POVIDONE-IODINE) [Concomitant]
  2. DORZOLAMIDE HYDROCHLORIDE [Concomitant]
  3. DOUBLEBASE [Concomitant]
  4. FLOXACILLIN SODIUM [Concomitant]
  5. FUROSEMIDE [Concomitant]
  6. CLOPIDOGREL [Suspect]
     Indication: CEREBROVASCULAR ACCIDENT PROPHYLAXIS
     Dates: start: 20110505, end: 20110604
  7. CLOPIDOGREL [Suspect]
     Indication: ATRIAL FIBRILLATION
     Dates: start: 20110505, end: 20110604
  8. PREDNISOLONE [Suspect]
     Indication: TEMPORAL ARTERITIS
     Dosage: 10 MG, REDUCING COURSE OF (40 MG TO 10 MG)
     Dates: start: 20110517
  9. LATANOPROST [Concomitant]
  10. CALCIUM CARBONATE [Concomitant]
  11. LANSOPRAZOLE [Concomitant]
  12. METFORMIN [Concomitant]
  13. ZIPZOC [Suspect]
     Indication: PRODUCT USED FOR UNKNOWN INDICATION
  14. ALENDRONIC ACID [Concomitant]
  15. CANDESARTAN CILEXETIL [Concomitant]

REACTIONS (2)
  - DUODENAL ULCER HAEMORRHAGE [None]
  - DRUG INTERACTION [None]
